FAERS Safety Report 4811368-6 (Version None)
Quarter: 2005Q4

REPORT INFORMATION
  Report Type: 
  Country: None (occurrence: None)
  Receive Date: 20051026
  Receipt Date: 20051026
  Transmission Date: 20060501
  Serious: Yes (Other)
  Sender: FDA-Public Use
  Company Number: None

PATIENT
  Age: 86 Year
  Sex: Male
  Weight: 58.9676 kg

DRUGS (9)
  1. FENTANYL [Suspect]
     Indication: PAIN
     Dosage: ONE PATCH 72 HOURS TRANSDERMAL
     Route: 062
     Dates: start: 20050610, end: 20051028
  2. FROMAX [Concomitant]
  3. PROCRIT [Concomitant]
  4. LOTREL [Concomitant]
  5. DIGOXIN [Concomitant]
  6. NIACIN [Concomitant]
  7. MULTI-VITAMIN [Concomitant]
  8. IRON PILLS [Concomitant]
  9. OXY-CAL [Concomitant]

REACTIONS (7)
  - CONDITION AGGRAVATED [None]
  - DRUG EFFECT DECREASED [None]
  - DRUG EFFECT INCREASED [None]
  - PAIN [None]
  - PHARMACEUTICAL PRODUCT COMPLAINT [None]
  - SOMNOLENCE [None]
  - THERAPEUTIC RESPONSE UNEXPECTED WITH DRUG SUBSTITUTION [None]
